FAERS Safety Report 9030912 (Version 1)
Quarter: 2013Q1

REPORT INFORMATION
  Report Type: Report from Study
  Country: ZA (occurrence: ZA)
  Receive Date: 20130123
  Receipt Date: 20130123
  Transmission Date: 20140127
  Serious: Yes (Hospitalization)
  Sender: FDA-Public Use
  Company Number: ZA-ROCHE-1182287

PATIENT
  Sex: Male

DRUGS (3)
  1. MIRCERA [Suspect]
     Indication: PRODUCT USED FOR UNKNOWN INDICATION
     Route: 058
     Dates: start: 20091125
  2. MIRCERA [Suspect]
     Route: 065
     Dates: start: 20110324
  3. MIRCERA [Suspect]
     Route: 065
     Dates: start: 20110921

REACTIONS (1)
  - Subcutaneous abscess [Unknown]
